FAERS Safety Report 14055516 (Version 1)
Quarter: 2017Q4

REPORT INFORMATION
  Report Type: Spontaneous
  Country: US (occurrence: US)
  Receive Date: 20171006
  Receipt Date: 20171006
  Transmission Date: 20180321
  Serious: No
  Sender: FDA-Public Use
  Company Number: US-SHIRE-US201724492

PATIENT
  Weight: 108.84 kg

DRUGS (1)
  1. LIALDA [Suspect]
     Active Substance: MESALAMINE
     Indication: CROHN^S DISEASE
     Dosage: 1.2 G, 2X/DAY:BID
     Route: 048
     Dates: start: 2017

REACTIONS (6)
  - Skin exfoliation [Not Recovered/Not Resolved]
  - Headache [Not Recovered/Not Resolved]
  - Product taste abnormal [Unknown]
  - Hypoacusis [Unknown]
  - Rash pruritic [Not Recovered/Not Resolved]
  - Back pain [Not Recovered/Not Resolved]
